FAERS Safety Report 14749741 (Version 5)
Quarter: 2018Q4

REPORT INFORMATION
  Report Type: Report from Study
  Country: JP (occurrence: JP)
  Receive Date: 20180412
  Receipt Date: 20181119
  Transmission Date: 20190204
  Serious: Yes (Death, Hospitalization, Other)
  Sender: FDA-Public Use
  Company Number: JP-BRISTOL-MYERS SQUIBB COMPANY-BMS-2018-032725

PATIENT
  Age: 59 Year
  Sex: Female
  Weight: 80 kg

DRUGS (3)
  1. LOXOPROFEN                         /00890702/ [Suspect]
     Active Substance: LOXOPROFEN
     Indication: PRODUCT USED FOR UNKNOWN INDICATION
     Dosage: 180 MG, Q8H
     Route: 065
  2. CPT-11 [Suspect]
     Active Substance: IRINOTECAN
     Indication: GASTRIC CANCER
     Dosage: UNK
     Route: 065
     Dates: start: 20180309
  3. NIVOLUMAB [Suspect]
     Active Substance: NIVOLUMAB
     Indication: GASTRIC CANCER
     Dosage: 3 MG/KG, UNK
     Route: 041
     Dates: start: 20171227, end: 20180223

REACTIONS (3)
  - Upper gastrointestinal haemorrhage [Recovered/Resolved]
  - Gastrointestinal candidiasis [Recovered/Resolved]
  - Malignant neoplasm progression [Fatal]

NARRATIVE: CASE EVENT DATE: 20180331
